FAERS Safety Report 6073374-6 (Version None)
Quarter: 2009Q1

REPORT INFORMATION
  Report Type: 
  Country: None (occurrence: None)
  Receive Date: 20090211
  Receipt Date: 20090206
  Transmission Date: 20090719
  Serious: Yes (Life-Threatening, Hospitalization)
  Sender: FDA-Public Use
  Company Number: FR-WYE-G02750408

PATIENT
  Sex: Male

DRUGS (3)
  1. RAPAMUNE [Suspect]
     Indication: PROPHYLAXIS AGAINST TRANSPLANT REJECTION
     Dosage: 3 MG TOTAL DAILY
     Route: 048
     Dates: start: 20080920, end: 20081101
  2. CORTANCYL [Concomitant]
     Route: 048
     Dates: start: 20031107
  3. CELLCEPT [Concomitant]
     Route: 048
     Dates: start: 20031107

REACTIONS (2)
  - HYPOXIA [None]
  - INTERSTITIAL LUNG DISEASE [None]
